FAERS Safety Report 10172880 (Version 2)
Quarter: 2014Q2

REPORT INFORMATION
  Report Type: Spontaneous
  Country: JP (occurrence: JP)
  Receive Date: 20140515
  Receipt Date: 20140519
  Transmission Date: 20141212
  Serious: Yes (Other)
  Sender: FDA-Public Use
  Company Number: JP-ACCORD-023651

PATIENT
  Age: 14 Year
  Sex: Male

DRUGS (2)
  1. TACROLIMUS [Suspect]
     Indication: LIVER TRANSPLANT
     Dosage: INDICATION: POST LIVER TRANSPLANT IMMUNOSUPPRESSION.
  2. METHYLPREDNISOLONE [Suspect]
     Indication: LIVER TRANSPLANT

REACTIONS (1)
  - Acute myeloid leukaemia [Recovered/Resolved]
